FAERS Safety Report 23545634 (Version 1)
Quarter: 2024Q1

REPORT INFORMATION
  Report Type: Spontaneous
  Country: IT (occurrence: IT)
  Receive Date: 20240220
  Receipt Date: 20240220
  Transmission Date: 20240409
  Serious: Yes (Other)
  Sender: FDA-Public Use
  Company Number: None

PATIENT
  Age: 45 Year
  Sex: Female

DRUGS (3)
  1. CARBOPLATIN [Suspect]
     Active Substance: CARBOPLATIN
     Indication: Invasive ductal breast carcinoma
     Dosage: CARBOPLATIN AUC 2 G 1, 8, 15 Q 28
     Dates: start: 20240105, end: 20240105
  2. ABRAXANE [Concomitant]
     Active Substance: PACLITAXEL
     Dosage: DAY 1, 8, 15
     Dates: start: 20230623, end: 20240105
  3. ATEZOLIZUMAB [Concomitant]
     Active Substance: ATEZOLIZUMAB
     Dosage: DAY 1 AND 15
     Dates: start: 20230623, end: 20240105

REACTIONS (3)
  - Dyspnoea [Recovered/Resolved]
  - Hyperhidrosis [Recovered/Resolved]
  - Rash [Recovered/Resolved]

NARRATIVE: CASE EVENT DATE: 20240105
